FAERS Safety Report 5876664-2 (Version None)
Quarter: 2008Q3

REPORT INFORMATION
  Report Type: 
  Country: None (occurrence: None)
  Receive Date: 20080908
  Receipt Date: 20080908
  Transmission Date: 20090109
  Serious: Yes (Hospitalization, Other)
  Sender: FDA-Public Use
  Company Number: None

PATIENT
  Age: 54 Year
  Sex: Female
  Weight: 56.6996 kg

DRUGS (2)
  1. ZOCOR [Suspect]
     Indication: BLOOD CHOLESTEROL INCREASED
     Dosage: 20 MG SIMVASTATIN 1 AT BEDTIME PO
     Route: 048
     Dates: start: 20060828, end: 20080728
  2. ZOCOR [Suspect]
     Dosage: 20 MG SIMVASTATIN 1 AT BEDTIME PO
     Route: 048

REACTIONS (2)
  - ACTIVITIES OF DAILY LIVING IMPAIRED [None]
  - VENTRICULAR EXTRASYSTOLES [None]
